FAERS Safety Report 14210204 (Version 2)
Quarter: 2018Q1

REPORT INFORMATION
  Report Type: Spontaneous
  Country: DE (occurrence: DE)
  Receive Date: 20171121
  Receipt Date: 20180213
  Transmission Date: 20180508
  Serious: Yes (Other)
  Sender: FDA-Public Use
  Company Number: DE-PFIZER INC-2017500132

PATIENT
  Age: 67 Year
  Sex: Male
  Weight: 68 kg

DRUGS (6)
  1. PIPAMPERON [Concomitant]
     Active Substance: PIPAMPERONE HYDROCHLORIDE
     Dosage: UNK
     Dates: start: 201707, end: 20170914
  2. PANTOPRAZOLE [Suspect]
     Active Substance: PANTOPRAZOLE
     Indication: LARYNGITIS
     Dosage: 40 MG, 1X/DAY
     Route: 048
     Dates: start: 20170706, end: 20170927
  3. SERTRALINE [Concomitant]
     Active Substance: SERTRALINE HYDROCHLORIDE
     Dosage: UNK
     Dates: start: 20170728
  4. MIRTAZAPIN [Concomitant]
     Active Substance: MIRTAZAPINE
     Dosage: UNK
     Dates: start: 20170728
  5. NOVAMINSULFON [Concomitant]
     Active Substance: METAMIZOLE
     Dosage: UNK
     Dates: start: 20170830, end: 20170928
  6. RISPERIDON [Concomitant]
     Active Substance: RISPERIDONE
     Dosage: UNK
     Dates: start: 20170728

REACTIONS (2)
  - Product use in unapproved indication [Unknown]
  - Hypokalaemia [Recovered/Resolved]

NARRATIVE: CASE EVENT DATE: 201707
